FAERS Safety Report 8630970 (Version 2)
Quarter: 2013Q2

REPORT INFORMATION
  Report Type: Spontaneous
  Country: IN (occurrence: IN)
  Receive Date: 20120622
  Receipt Date: 20130412
  Transmission Date: 20140414
  Serious: Yes (Other)
  Sender: FDA-Public Use
  Company Number: PHHY2012IN051954

PATIENT
  Age: 43 Year
  Sex: Female

DRUGS (3)
  1. OXCARBAZEPINE [Suspect]
     Indication: EPILEPSY
     Dosage: 600 MG, BID
  2. CLOBAZAM [Suspect]
     Indication: EPILEPSY
     Dosage: 10 MG, BID
  3. ZONISAMIDE [Suspect]
     Indication: EPILEPSY
     Dosage: 100 MG, QD

REACTIONS (10)
  - Femoral neck fracture [Unknown]
  - Hyperparathyroidism [Unknown]
  - Brown tumour [Unknown]
  - Osteomalacia [Unknown]
  - Osteoporosis [Unknown]
  - Groin pain [Unknown]
  - Weight bearing difficulty [Unknown]
  - Gait disturbance [Unknown]
  - Bedridden [Unknown]
  - Vitamin D decreased [Unknown]
